FAERS Safety Report 7653845-9 (Version None)
Quarter: 2011Q3

REPORT INFORMATION
  Report Type: 
  Country: None (occurrence: None)
  Receive Date: 20110803
  Receipt Date: 20110719
  Transmission Date: 20111222
  Serious: Yes (Disabling)
  Sender: FDA-Public Use
  Company Number: GB-WATSON-2011-11402

PATIENT
  Age: 80 Year
  Sex: Female

DRUGS (11)
  1. DIPROBASE                          /01132701/ [Concomitant]
     Indication: PRODUCT USED FOR UNKNOWN INDICATION
     Dosage: 500 G, UNKNOWN
     Dates: start: 20110413
  2. SIMVASTATIN [Concomitant]
     Indication: PRODUCT USED FOR UNKNOWN INDICATION
     Dosage: 20 MG, DAILY
     Dates: start: 20101214
  3. QUINAPRIL HCL [Suspect]
     Indication: HYPERTENSION
     Dosage: 20 MG, UNKNOWN
     Route: 048
     Dates: start: 20070801, end: 20110627
  4. HEPATITIS A [Concomitant]
     Indication: PRODUCT USED FOR UNKNOWN INDICATION
     Dosage: UNK
     Dates: start: 20080305, end: 20080305
  5. BENDROFLUMETHIAZIDE [Concomitant]
     Indication: PRODUCT USED FOR UNKNOWN INDICATION
     Dosage: 2.5 MG, DAILY
     Dates: start: 20101214
  6. LOPERAMIDE HYDROCHLORIDE [Concomitant]
     Indication: DIARRHOEA
     Dosage: 2 MG, UNKNOWN
     Dates: start: 20100823
  7. FELODIPINE [Concomitant]
     Indication: PRODUCT USED FOR UNKNOWN INDICATION
     Dosage: 2.5 MG, DAILY
     Dates: start: 20100708, end: 20100902
  8. FELODIPINE [Concomitant]
     Dosage: 2.5 MG, DAILY
     Dates: start: 20101214
  9. HEPATITIS A [Concomitant]
     Dosage: UNK
     Dates: start: 20100628, end: 20100628
  10. HEPATYRIX [Concomitant]
     Indication: PRODUCT USED FOR UNKNOWN INDICATION
     Dosage: UNK
     Dates: start: 20100701, end: 20100701
  11. PERINDOPRIL ERBUMINE [Concomitant]
     Indication: PRODUCT USED FOR UNKNOWN INDICATION
     Dosage: 2 MG, DAILY
     Dates: start: 20110620

REACTIONS (1)
  - STRABISMUS [None]
